FAERS Safety Report 15106372 (Version 6)
Quarter: 2019Q3

REPORT INFORMATION
  Report Type: Report from Study
  Country: None (occurrence: NL)
  Receive Date: 20180704
  Receipt Date: 20190913
  Transmission Date: 20191004
  Serious: Yes (Hospitalization)
  Sender: FDA-Public Use
  Company Number: NL-ABBVIE-16K-114-1726285-00

PATIENT
  Age: 74 Year
  Sex: Female
  Weight: 54.3 kg

DRUGS (8)
  1. FLORINEF ACETATE [Concomitant]
     Active Substance: FLUDROCORTISONE ACETATE
     Indication: DIZZINESS
  2. DUODOPA [Suspect]
     Active Substance: CARBIDOPA\LEVODOPA
     Route: 050
  3. VITAMIN B12 [Concomitant]
     Active Substance: CYANOCOBALAMIN
     Indication: PRODUCT USED FOR UNKNOWN INDICATION
  4. DUODOPA [Suspect]
     Active Substance: CARBIDOPA\LEVODOPA
     Indication: PARKINSON^S DISEASE
     Dosage: MD 7.0, CD 1.9 TO 2.2, ED 1.0
     Route: 050
     Dates: start: 20160606
  5. DUODOPA [Suspect]
     Active Substance: CARBIDOPA\LEVODOPA
     Route: 050
  6. MACROGOL [Concomitant]
     Active Substance: POLYETHYLENE GLYCOLS
     Indication: ABNORMAL FAECES
     Route: 065
  7. DUODOPA [Suspect]
     Active Substance: CARBIDOPA\LEVODOPA
     Dosage: MD: 9.0, CD: 2.5, ED: 1.0
     Route: 050
  8. SINEMET [Concomitant]
     Active Substance: CARBIDOPA\LEVODOPA
     Indication: PARKINSON^S DISEASE
     Dosage: FREQUENCY: TWO TIMES

REACTIONS (38)
  - Fall [Not Recovered/Not Resolved]
  - Nausea [Unknown]
  - Syncope [Not Recovered/Not Resolved]
  - Urinary tract infection [Not Recovered/Not Resolved]
  - Speech disorder [Not Recovered/Not Resolved]
  - Hypophagia [Not Recovered/Not Resolved]
  - Mobility decreased [Not Recovered/Not Resolved]
  - Hallucination [Recovered/Resolved]
  - Blood urine present [Unknown]
  - Hiccups [Not Recovered/Not Resolved]
  - Somnolence [Not Recovered/Not Resolved]
  - Unevaluable event [Not Recovered/Not Resolved]
  - Decreased appetite [Recovering/Resolving]
  - Hypotension [Unknown]
  - Drug ineffective [Not Recovered/Not Resolved]
  - Freezing phenomenon [Recovered/Resolved]
  - Bradykinesia [Recovered/Resolved]
  - Restlessness [Not Recovered/Not Resolved]
  - Drug level decreased [Not Recovered/Not Resolved]
  - Balance disorder [Not Recovered/Not Resolved]
  - Distractibility [Not Recovered/Not Resolved]
  - Hypersomnia [Recovered/Resolved]
  - Muscular weakness [Not Recovered/Not Resolved]
  - Weight decreased [Recovered/Resolved]
  - Abnormal dreams [Not Recovered/Not Resolved]
  - Disorientation [Not Recovered/Not Resolved]
  - On and off phenomenon [Not Recovered/Not Resolved]
  - Dizziness [Not Recovered/Not Resolved]
  - Mobility decreased [Not Recovered/Not Resolved]
  - Dysstasia [Not Recovered/Not Resolved]
  - Fluid intake reduced [Not Recovered/Not Resolved]
  - Tremor [Not Recovered/Not Resolved]
  - Dyskinesia [Not Recovered/Not Resolved]
  - Delirium [Recovered/Resolved]
  - Cognitive disorder [Not Recovered/Not Resolved]
  - Gait disturbance [Not Recovered/Not Resolved]
  - Fatigue [Not Recovered/Not Resolved]
  - Bradykinesia [Not Recovered/Not Resolved]

NARRATIVE: CASE EVENT DATE: 2016
